FAERS Safety Report 5782090-7 (Version None)
Quarter: 2008Q2

REPORT INFORMATION
  Report Type: 
  Country: None (occurrence: None)
  Receive Date: 20080623
  Receipt Date: 20080609
  Transmission Date: 20081010
  Serious: Yes (Other)
  Sender: FDA-Public Use
  Company Number: IN-ROCHE-569845

PATIENT
  Age: 50 Year
  Sex: Male

DRUGS (4)
  1. RIBAVIRIN [Suspect]
     Indication: HEPATITIS C VIRUS
     Dosage: LOW DOSE
     Route: 065
  2. CAPECITABINE [Suspect]
     Route: 048
  3. THALIDOMIDE [Suspect]
     Route: 065
  4. INTERFERON [Suspect]
     Indication: HEPATITIS C VIRUS
     Dosage: LOW DOSE
     Route: 065

REACTIONS (1)
  - PALMAR-PLANTAR ERYTHRODYSAESTHESIA SYNDROME [None]
